FAERS Safety Report 19623152 (Version 1)
Quarter: 2021Q3

REPORT INFORMATION
  Report Type: Spontaneous
  Country: US (occurrence: US)
  Receive Date: 20210728
  Receipt Date: 20210728
  Transmission Date: 20211014
  Serious: No
  Sender: FDA-Public Use
  Company Number: NVSC2021US166499

PATIENT

DRUGS (1)
  1. ALPELISIB [Suspect]
     Active Substance: ALPELISIB
     Indication: BREAST CANCER
     Dosage: UNK, QD
     Route: 048

REACTIONS (4)
  - Nausea [Unknown]
  - Rash [Unknown]
  - Back pain [Unknown]
  - Dizziness [Unknown]
